FAERS Safety Report 7734469-1 (Version None)
Quarter: 2011Q3

REPORT INFORMATION
  Report Type: 
  Country: None (occurrence: None)
  Receive Date: 20110907
  Receipt Date: 20110824
  Transmission Date: 20111222
  Serious: Yes (Hospitalization)
  Sender: FDA-Public Use
  Company Number: NL-SPECTRUM PHARMACEUTICALS, INC.-11-Z-NL-00237

PATIENT

DRUGS (5)
  1. LANOXIN [Concomitant]
  2. RITUXIMAB [Suspect]
     Indication: NON-HODGKIN'S LYMPHOMA
     Dosage: 1100 MG, QD
     Route: 042
     Dates: start: 20110421, end: 20110428
  3. PERINDOPRIL [Concomitant]
     Dosage: UNK
     Dates: end: 20110712
  4. PREDNISONE [Concomitant]
     Dosage: UNK
     Dates: start: 20110101
  5. ZEVALIN [Suspect]
     Indication: NON-HODGKIN'S LYMPHOMA
     Dosage: 1200 MBQ, SINGLE
     Route: 042
     Dates: start: 20110428, end: 20110428

REACTIONS (1)
  - UROSEPSIS [None]
